FAERS Safety Report 7890328-5 (Version None)
Quarter: 2011Q4

REPORT INFORMATION
  Report Type: 
  Country: None (occurrence: None)
  Receive Date: 20111103
  Receipt Date: 20110805
  Transmission Date: 20120403
  Serious: No
  Sender: FDA-Public Use
  Company Number: US-AMGEN-USASP2011039992

PATIENT
  Sex: Female

DRUGS (3)
  1. ENBREL [Suspect]
     Indication: PSORIATIC ARTHROPATHY
     Dosage: 50 MG, QWK
     Dates: start: 20101210
  2. ENBREL [Suspect]
     Indication: PSORIASIS
  3. ENBREL [Suspect]
     Indication: TRISOMY 21

REACTIONS (5)
  - UPPER RESPIRATORY TRACT CONGESTION [None]
  - FEELING HOT [None]
  - HYPERSENSITIVITY [None]
  - NASAL CONGESTION [None]
  - MALAISE [None]
